FAERS Safety Report 10238040 (Version 1)
Quarter: 2014Q2

REPORT INFORMATION
  Report Type: Spontaneous
  Country: US (occurrence: US)
  Receive Date: 20140616
  Receipt Date: 20140616
  Transmission Date: 20141212
  Serious: Yes (Other)
  Sender: FDA-Public Use
  Company Number: US-ELI_LILLY_AND_COMPANY-US201406000759

PATIENT
  Age: 57 Year
  Sex: Female

DRUGS (15)
  1. CYMBALTA [Suspect]
     Indication: DEPRESSION
     Dosage: 30 MG, UNKNOWN
     Route: 065
     Dates: start: 2000
  2. CYMBALTA [Suspect]
     Indication: PAIN
     Dosage: 20 MG, QD
     Route: 065
  3. CYMBALTA [Suspect]
     Dosage: 30 MG, UNKNOWN
     Route: 065
     Dates: start: 2013, end: 2013
  4. CYMBALTA [Suspect]
     Dosage: 20 MG, QD
     Route: 065
     Dates: end: 201304
  5. DULOXETINE [Suspect]
     Indication: DEPRESSION
     Dosage: 20 MG, 2/W
     Route: 065
     Dates: start: 201405
  6. DULOXETINE [Suspect]
     Indication: PAIN
     Dosage: 20 MG, 3/W
     Route: 065
     Dates: start: 201404, end: 201405
  7. SPIRONOLACTONE [Concomitant]
     Dosage: 25 MG, QD
     Route: 065
  8. LISINOPRIL [Concomitant]
     Dosage: 20 MG, QD
  9. TRAZODONE [Concomitant]
     Dosage: 50 MG, EACH EVENING
     Route: 065
  10. FLAXSEED OIL [Concomitant]
     Dosage: 1400 MG, QD
     Route: 065
  11. CALCIUM [Concomitant]
     Dosage: 630 U, EACH EVENING
     Route: 065
  12. SUPER B COMPLEX [Concomitant]
     Dosage: UNK, UNKNOWN
     Route: 065
  13. VITAMIN D3 [Concomitant]
     Dosage: 5000 IU, QD
     Route: 065
  14. QUERCETIN [Concomitant]
     Dosage: UNK, UNKNOWN
     Route: 065
  15. BROMELAIN [Concomitant]
     Dosage: UNK, BID
     Route: 065

REACTIONS (16)
  - Cervical vertebral fracture [Unknown]
  - Abnormal behaviour [Unknown]
  - Poor quality sleep [Unknown]
  - Arthritis [Unknown]
  - Feeling drunk [Unknown]
  - Blood creatine increased [Unknown]
  - Feeling hot [Unknown]
  - Mood swings [Unknown]
  - Drug ineffective [Unknown]
  - Irritability [Unknown]
  - Fatigue [Unknown]
  - Neck pain [Recovering/Resolving]
  - Headache [Unknown]
  - Diarrhoea [Unknown]
  - Alopecia [Unknown]
  - Drug withdrawal syndrome [Unknown]
